FAERS Safety Report 23976909 (Version 1)
Quarter: 2024Q2

REPORT INFORMATION
  Report Type: Spontaneous
  Country: US (occurrence: None)
  Receive Date: 20240614
  Receipt Date: 20240614
  Transmission Date: 20240715
  Serious: Yes (Other)
  Sender: FDA-Public Use
  Company Number: 2024A134221

PATIENT
  Age: 64 Year
  Sex: Male
  Weight: 85.7 kg

DRUGS (2)
  1. BRILINTA [Interacting]
     Active Substance: TICAGRELOR
     Indication: Device occlusion
     Route: 048
     Dates: start: 20231207, end: 20231217
  2. VASCEPA [Interacting]
     Active Substance: ICOSAPENT ETHYL

REACTIONS (4)
  - Swelling face [Recovered/Resolved]
  - Rash [Recovered/Resolved]
  - Dyspnoea [Recovered/Resolved]
  - Drug interaction [Unknown]

NARRATIVE: CASE EVENT DATE: 20231217
